FAERS Safety Report 18500140 (Version 2)
Quarter: 2022Q4

REPORT INFORMATION
  Report Type: Report from Study
  Country: US (occurrence: US)
  Receive Date: 20201113
  Receipt Date: 20221219
  Transmission Date: 20230113
  Serious: Yes (Other)
  Sender: FDA-Public Use
  Company Number: US-ABBVIE-20P-163-3365007-00

PATIENT
  Age: 73 Year
  Sex: Male

DRUGS (1)
  1. IMBRUVICA [Suspect]
     Active Substance: IBRUTINIB
     Indication: Chronic lymphocytic leukaemia
     Route: 048
     Dates: start: 20190101

REACTIONS (11)
  - Vascular rupture [Unknown]
  - Dysphagia [Not Recovered/Not Resolved]
  - Muscle spasms [Not Recovered/Not Resolved]
  - Oesophageal food impaction [Unknown]
  - Ear discomfort [Unknown]
  - Otorrhoea [Unknown]
  - Malaise [Unknown]
  - Haematuria [Unknown]
  - Increased tendency to bruise [Unknown]
  - Muscle spasms [Unknown]
  - Petechiae [Unknown]

NARRATIVE: CASE EVENT DATE: 20200301
